FAERS Safety Report 5368383-6 (Version None)
Quarter: 2007Q2

REPORT INFORMATION
  Report Type: 
  Country: None (occurrence: None)
  Receive Date: 20070622
  Receipt Date: 20070622
  Transmission Date: 20071010
  Serious: Yes (Hospitalization, Other)
  Sender: FDA-Public Use
  Company Number: None

PATIENT
  Sex: Female
  Weight: 63.5036 kg

DRUGS (1)
  1. FOSAMAX [Suspect]
     Indication: OSTEOPOROSIS PROPHYLAXIS
     Dosage: 70 MG ONCE WEEKLY PO
     Route: 048
     Dates: start: 20020901, end: 20070322

REACTIONS (19)
  - ACTIVITIES OF DAILY LIVING IMPAIRED [None]
  - ARTHRALGIA [None]
  - CENTRAL NERVOUS SYSTEM INFECTION [None]
  - CONFUSIONAL STATE [None]
  - DELIRIUM [None]
  - DEMENTIA [None]
  - DEPRESSION [None]
  - FALL [None]
  - HAEMATOMA [None]
  - HALLUCINATION, VISUAL [None]
  - HYPOACUSIS [None]
  - MENTAL IMPAIRMENT [None]
  - MENTAL STATUS CHANGES [None]
  - MYALGIA [None]
  - NEUROTOXICITY [None]
  - NIGHTMARE [None]
  - ROAD TRAFFIC ACCIDENT [None]
  - SYNCOPE [None]
  - VISUAL DISTURBANCE [None]
